FAERS Safety Report 7523422-9 (Version None)
Quarter: 2011Q2

REPORT INFORMATION
  Report Type: 
  Country: None (occurrence: None)
  Receive Date: 20110525
  Receipt Date: 20110510
  Transmission Date: 20111010
  Serious: Yes (Hospitalization)
  Sender: FDA-Public Use
  Company Number: 014427

PATIENT
  Age: 71 Year
  Sex: Male
  Weight: 60.2 kg

DRUGS (5)
  1. BASEN (VOGLIBOSE) [Concomitant]
  2. GLICLAZIDE (GLICLAZIDE) [Concomitant]
  3. MICARDIS [Concomitant]
  4. MACUGEN [Suspect]
     Indication: DIABETIC RETINAL OEDEMA
     Dosage: 0.3 MG, CYCLIC
     Dates: start: 20101115, end: 20110204
  5. LOPERAMIDE HCL [Concomitant]

REACTIONS (4)
  - GLAUCOMA [None]
  - PROCEDURAL PAIN [None]
  - VITREOUS HAEMORRHAGE [None]
  - HYPOTONY OF EYE [None]
